FAERS Safety Report 13879119 (Version 1)
Quarter: 2017Q3

REPORT INFORMATION
  Report Type: Spontaneous
  Country: US (occurrence: US)
  Receive Date: 20170817
  Receipt Date: 20170817
  Transmission Date: 20171127
  Serious: No
  Sender: FDA-Public Use
  Company Number: US-BIOGEN-2015BI140545

PATIENT
  Sex: Male

DRUGS (1)
  1. TECFIDERA [Suspect]
     Active Substance: DIMETHYL FUMARATE
     Indication: MULTIPLE SCLEROSIS
     Route: 048
     Dates: start: 20140701

REACTIONS (6)
  - Gait disturbance [Unknown]
  - Dysgraphia [Unknown]
  - Hemiparesis [Unknown]
  - Liver disorder [Unknown]
  - Flatulence [Unknown]
  - Nuclear magnetic resonance imaging abnormal [Unknown]
